FAERS Safety Report 6277890-3 (Version None)
Quarter: 2009Q3

REPORT INFORMATION
  Report Type: 
  Country: None (occurrence: None)
  Receive Date: 20090722
  Receipt Date: 20090716
  Transmission Date: 20100115
  Serious: Yes (Other)
  Sender: FDA-Public Use
  Company Number: US-MERCK-0907USA02648

PATIENT
  Age: 61 Year
  Sex: Male

DRUGS (6)
  1. ZETIA [Suspect]
     Route: 048
     Dates: start: 20080806
  2. SYNTHROID [Concomitant]
     Route: 065
  3. NIACIN [Concomitant]
     Route: 065
  4. ZOLOFT [Concomitant]
     Route: 065
  5. INSULIN [Concomitant]
     Route: 065
  6. COZAAR [Concomitant]
     Route: 065

REACTIONS (2)
  - MYOSITIS [None]
  - WRONG TECHNIQUE IN DRUG USAGE PROCESS [None]
